FAERS Safety Report 16497717 (Version 1)
Quarter: 2019Q2

REPORT INFORMATION
  Report Type: Report from Study
  Country: US (occurrence: US)
  Receive Date: 20190628
  Receipt Date: 20190628
  Transmission Date: 20190711
  Serious: Yes (Other)
  Sender: FDA-Public Use
  Company Number: US-JNJFOC-20190621729

PATIENT
  Sex: Female

DRUGS (13)
  1. IMBRUVICA [Suspect]
     Active Substance: IBRUTINIB
     Indication: CHRONIC LYMPHOCYTIC LEUKAEMIA
     Route: 048
     Dates: start: 20180427, end: 20180626
  2. RENA-VITE [Concomitant]
     Active Substance: ASCORBIC ACID\BIOTIN\CALCIUM PANTOTHENATE\CYANOCOBALAMIN\FOLIC ACID\NIACINAMIDE\PYRIDOXINE HYDROCHLORIDE\RIBOFLAVIN\THIAMINE MONONITRATE
  3. TYLENOL [Concomitant]
     Active Substance: ACETAMINOPHEN
  4. LACTAID [Concomitant]
     Active Substance: LACTASE
  5. IMBRUVICA [Suspect]
     Active Substance: IBRUTINIB
     Indication: CHRONIC LYMPHOCYTIC LEUKAEMIA
     Dosage: 280 MG, QD
     Route: 048
     Dates: start: 20180627
  6. ZOCOR [Concomitant]
     Active Substance: SIMVASTATIN
  7. ARANESP [Concomitant]
     Active Substance: DARBEPOETIN ALFA
  8. VITAMIN D3 [Concomitant]
     Active Substance: CHOLECALCIFEROL
  9. IMBRUVICA [Suspect]
     Active Substance: IBRUTINIB
     Indication: CHRONIC LYMPHOCYTIC LEUKAEMIA
     Route: 048
     Dates: start: 20160521, end: 20180426
  10. TOPROL XL [Concomitant]
     Active Substance: METOPROLOL SUCCINATE
  11. NORVASC [Concomitant]
     Active Substance: AMLODIPINE BESYLATE
  12. ZYLOPRIM [Concomitant]
     Active Substance: ALLOPURINOL
  13. CLARITIN [Concomitant]
     Active Substance: LORATADINE

REACTIONS (1)
  - Chronic kidney disease [Unknown]
